FAERS Safety Report 22396244 (Version 1)
Quarter: 2023Q2

REPORT INFORMATION
  Report Type: Spontaneous
  Country: US (occurrence: US)
  Receive Date: 20230601
  Receipt Date: 20230601
  Transmission Date: 20230722
  Serious: No
  Sender: FDA-Public Use
  Company Number: US-APIL-2309732US

PATIENT
  Sex: Female
  Weight: 68.038 kg

DRUGS (1)
  1. BOTOX [Suspect]
     Active Substance: ONABOTULINUMTOXINA
     Indication: Hyperhidrosis
     Dosage: 200 UNITS, SINGLE
     Dates: start: 20230301, end: 20230301

REACTIONS (6)
  - Lymphadenopathy [Recovering/Resolving]
  - Pain [Not Recovered/Not Resolved]
  - Rash vesicular [Unknown]
  - Rash [Recovering/Resolving]
  - Dysphagia [Not Recovered/Not Resolved]
  - Pruritus [Not Recovered/Not Resolved]

NARRATIVE: CASE EVENT DATE: 20230101
